FAERS Safety Report 10348270 (Version 4)
Quarter: 2014Q3

REPORT INFORMATION
  Report Type: Report from Study
  Country: NZ (occurrence: NZ)
  Receive Date: 20140729
  Receipt Date: 20140908
  Transmission Date: 20150326
  Serious: Yes (Hospitalization, Other)
  Sender: FDA-Public Use
  Company Number: NZ-GLAXOSMITHKLINE-B1018186A

PATIENT
  Age: 60 Year
  Sex: Male

DRUGS (1)
  1. DABRAFENIB [Suspect]
     Active Substance: DABRAFENIB
     Indication: METASTATIC MALIGNANT MELANOMA
     Dosage: 300MG FROM 25JAN2013-10MAR2013200MG FROM 11MAR2013-19APR2013
     Route: 048
     Dates: start: 20130125, end: 20130419

REACTIONS (4)
  - Liver function test abnormal [Not Recovered/Not Resolved]
  - Keratoacanthoma [Not Recovered/Not Resolved]
  - Squamous cell carcinoma of skin [Not Recovered/Not Resolved]
  - Pyrexia [Recovered/Resolved]

NARRATIVE: CASE EVENT DATE: 20130304
